FAERS Safety Report 5032300-9 (Version None)
Quarter: 2006Q2

REPORT INFORMATION
  Report Type: 
  Country: None (occurrence: None)
  Receive Date: 20060622
  Receipt Date: 20060613
  Transmission Date: 20061013
  Serious: Yes (Hospitalization)
  Sender: FDA-Public Use
  Company Number: US-JNJFOC-20060102791

PATIENT
  Sex: Female
  Weight: 65.32 kg

DRUGS (23)
  1. REMICADE [Suspect]
     Route: 042
  2. REMICADE [Suspect]
     Route: 042
  3. REMICADE [Suspect]
     Route: 042
  4. REMICADE [Suspect]
     Route: 042
  5. REMICADE [Suspect]
     Route: 042
  6. REMICADE [Suspect]
     Route: 042
  7. REMICADE [Suspect]
     Route: 042
  8. REMICADE [Suspect]
     Route: 042
  9. REMICADE [Suspect]
     Route: 042
  10. REMICADE [Suspect]
     Route: 042
  11. REMICADE [Suspect]
     Route: 042
  12. REMICADE [Suspect]
     Route: 042
  13. REMICADE [Suspect]
     Route: 042
  14. REMICADE [Suspect]
     Route: 042
  15. REMICADE [Suspect]
     Route: 042
  16. REMICADE [Suspect]
     Route: 042
  17. REMICADE [Suspect]
     Indication: CROHN'S DISEASE
     Route: 042
  18. AZATHIOPRINE [Suspect]
     Indication: CROHN'S DISEASE
  19. ANTISPASMODIC [Suspect]
     Indication: CROHN'S DISEASE
  20. NARCOTIC ANALGESICS [Suspect]
     Indication: CROHN'S DISEASE
  21. ANTIDEPRESSANTS [Suspect]
     Indication: CROHN'S DISEASE
  22. PREDNISONE [Suspect]
     Indication: CROHN'S DISEASE
  23. ANTIBIOTICS [Suspect]
     Indication: CROHN'S DISEASE

REACTIONS (3)
  - DIVERTICULITIS [None]
  - FEMALE GENITAL TRACT FISTULA [None]
  - LUNG ABSCESS [None]
